FAERS Safety Report 5419788-6 (Version None)
Quarter: 2007Q3

REPORT INFORMATION
  Report Type: 
  Country: None (occurrence: None)
  Receive Date: 20070820
  Receipt Date: 20070514
  Transmission Date: 20080115
  Serious: Yes (Other)
  Sender: FDA-Public Use
  Company Number: DE-ASTRAZENECA-2007AC00896

PATIENT
  Age: 62 Year
  Sex: Male
  Weight: 91 kg

DRUGS (10)
  1. BUPIVACAINE [Suspect]
     Indication: NERVE BLOCK
     Route: 053
  2. PRILOCAINE [Suspect]
     Indication: NERVE BLOCK
     Route: 053
  3. THIOPENTAL SODIUM [Suspect]
     Indication: GENERAL ANAESTHESIA
  4. ALFENTANIL [Suspect]
     Indication: GENERAL ANAESTHESIA
  5. ROCURONIUM BROMIDE [Suspect]
     Indication: GENERAL ANAESTHESIA
  6. SEVOFLURANE [Suspect]
     Indication: ANAESTHESIA
  7. ATENOLOL [Concomitant]
  8. ACARBOSE [Concomitant]
  9. TAMSULOSIN HCL [Concomitant]
     Indication: BENIGN PROSTATIC HYPERPLASIA
  10. VASOPRESSORS [Concomitant]
     Indication: BLOOD PRESSURE SYSTOLIC DECREASED

REACTIONS (1)
  - PULMONARY OEDEMA [None]
